FAERS Safety Report 5794002-0 (Version None)
Quarter: 2008Q2

REPORT INFORMATION
  Report Type: 
  Country: None (occurrence: None)
  Receive Date: 20080627
  Receipt Date: 20080619
  Transmission Date: 20081010
  Serious: Yes (Hospitalization)
  Sender: FDA-Public Use
  Company Number: JP-PFIZER INC-2007097745

PATIENT
  Sex: Male

DRUGS (8)
  1. CELECOX [Suspect]
     Indication: RHEUMATOID ARTHRITIS
     Route: 048
     Dates: start: 20071029, end: 20071116
  2. PREDONINE [Concomitant]
     Indication: RHEUMATOID ARTHRITIS
     Route: 048
  3. RIMATIL [Concomitant]
     Indication: RHEUMATOID ARTHRITIS
     Route: 048
     Dates: start: 20070115
  4. VALSARTAN [Concomitant]
     Indication: HYPERTENSION
     Dosage: DAILY DOSE:160MG-FREQ:DAILY
     Route: 048
  5. AMOBAN [Concomitant]
     Indication: INSOMNIA
     Dosage: DAILY DOSE:7.5MG-FREQ:DAILY
     Route: 048
     Dates: start: 20060320
  6. ALENDRONATE SODIUM [Concomitant]
     Indication: OSTEOPOROSIS
     Dosage: DAILY DOSE:5MG-FREQ:DAILY
     Route: 048
     Dates: start: 20060709
  7. DEPAS [Concomitant]
     Indication: INSOMNIA
     Dosage: DAILY DOSE:.5MG-FREQ:DAILY
     Route: 048
     Dates: start: 20060302
  8. LANSOPRAZOLE [Concomitant]
     Indication: DUODENAL ULCER
     Dosage: DAILY DOSE:15MG-FREQ:DAILY
     Route: 048
     Dates: start: 20070910

REACTIONS (3)
  - ENTEROCOLITIS [None]
  - HEPATIC FUNCTION ABNORMAL [None]
  - RASH [None]
